FAERS Safety Report 14032151 (Version 1)
Quarter: 2017Q4

REPORT INFORMATION
  Report Type: Spontaneous
  Country: CH (occurrence: CH)
  Receive Date: 20171002
  Receipt Date: 20171002
  Transmission Date: 20180321
  Serious: Yes (Hospitalization)
  Sender: FDA-Public Use
  Company Number: CH-PFIZER INC-2017416603

PATIENT
  Age: 89 Year
  Sex: Male

DRUGS (6)
  1. TAZOBAC [Interacting]
     Active Substance: PIPERACILLIN SODIUM\TAZOBACTAM SODIUM
     Indication: INFECTION
     Dosage: 2.25 G, 4X/DAY
     Route: 041
     Dates: start: 20170831
  2. MIDAZOLAM [Interacting]
     Active Substance: MIDAZOLAM HYDROCHLORIDE
     Dosage: TOTAL ACCUMULATIVE DOSE OF 144.4 MG
     Route: 041
     Dates: start: 20170901, end: 20170904
  3. BELOC ZOK [Concomitant]
     Active Substance: METOPROLOL SUCCINATE
     Dosage: 75 MG, 1X/DAY
     Route: 048
  4. TORASEMID SANDOZ ECO [Concomitant]
     Active Substance: TORSEMIDE
     Dosage: 2.5 MG, 1X/DAY
     Route: 048
  5. DIFLUCAN [Suspect]
     Active Substance: FLUCONAZOLE
     Indication: INFECTION
     Dosage: 200 MG, 1X/DAY
     Route: 041
     Dates: start: 20170902, end: 201709
  6. SINTROM [Concomitant]
     Active Substance: ACENOCOUMAROL
     Dosage: ACCORDING SCHEDULE
     Route: 048

REACTIONS (2)
  - Drug interaction [Recovering/Resolving]
  - Sedation complication [Recovered/Resolved]

NARRATIVE: CASE EVENT DATE: 20170903
